FAERS Safety Report 6232343-3 (Version None)
Quarter: 2009Q2

REPORT INFORMATION
  Report Type: 
  Country: None (occurrence: None)
  Receive Date: 20090616
  Receipt Date: 20090616
  Transmission Date: 20091009
  Serious: Yes (Other)
  Sender: FDA-Public Use
  Company Number: None

PATIENT
  Age: 50 Year
  Sex: Female
  Weight: 60.782 kg

DRUGS (2)
  1. HALFLYTELY [Suspect]
     Indication: BOWEL PREPARATION
     Dates: start: 20090503
  2. HALFLYTELY [Suspect]
     Indication: COLONOSCOPY
     Dates: start: 20090503

REACTIONS (4)
  - CHEST DISCOMFORT [None]
  - THROAT IRRITATION [None]
  - URTICARIA [None]
  - WHEEZING [None]
